FAERS Safety Report 7231518-4 (Version None)
Quarter: 2011Q1

REPORT INFORMATION
  Report Type: 
  Country: None (occurrence: None)
  Receive Date: 20110118
  Receipt Date: 20110106
  Transmission Date: 20110831
  Serious: Yes (Hospitalization)
  Sender: FDA-Public Use
  Company Number: BR-ASTRAZENECA-2010SE57997

PATIENT
  Age: 11 Year
  Sex: Female

DRUGS (10)
  1. SYMBICORT [Suspect]
     Dosage: 320/9 MCG DAILY
     Route: 055
     Dates: start: 20090101
  2. SYMBICORT [Suspect]
     Dosage: 80/4.5 MCG BID
     Route: 055
     Dates: start: 20090101, end: 20090101
  3. SYMBICORT [Suspect]
     Dosage: 320/9 MCG DAILY
     Route: 055
     Dates: start: 20090101
  4. SYMBICORT [Suspect]
     Dosage: 80/4.5 MCG BID
     Route: 055
     Dates: start: 20090101, end: 20090101
  5. SYMBICORT [Suspect]
     Indication: ASTHMA
     Dosage: 160/4.5 BID
     Route: 055
     Dates: start: 20080101, end: 20090101
  6. METICORTEN [Concomitant]
     Route: 048
     Dates: start: 20080101
  7. AEROLIN [Concomitant]
     Route: 055
  8. SYMBICORT [Suspect]
     Indication: BRONCHITIS
     Dosage: 160/4.5 BID
     Route: 055
     Dates: start: 20080101, end: 20090101
  9. AVAMYS [Concomitant]
     Dates: start: 20090101
  10. POLARAMINE [Concomitant]
     Dosage: PRN

REACTIONS (4)
  - DYSPNOEA [None]
  - SWELLING [None]
  - OFF LABEL USE [None]
  - RASH MACULAR [None]
